FAERS Safety Report 6857948-8 (Version None)
Quarter: 2010Q3

REPORT INFORMATION
  Report Type: 
  Country: None (occurrence: None)
  Receive Date: 20100714
  Receipt Date: 20100629
  Transmission Date: 20110219
  Serious: Yes (Death, Hospitalization, Other)
  Sender: FDA-Public Use
  Company Number: 2010SCPR001149

PATIENT
  Age: 36 Year
  Sex: Male

DRUGS (4)
  1. RISPERIDONE [Suspect]
     Indication: SCHIZOPHRENIA
     Dosage: 4 MG, QD, ORAL
     Route: 048
  2. HALOPERIDOL [Suspect]
     Indication: ACUTE PSYCHOSIS
     Dosage: 15 MG, INTRAMUSCULAR
     Route: 030
  3. CHLORPROMAZINE [Suspect]
     Indication: ACUTE PSYCHOSIS
     Dosage: 25 MG, INTRAMUSCULAR
     Route: 030
  4. OLANZAPINE [Suspect]
     Indication: ACUTE PSYCHOSIS
     Dosage: 5 MG, QD, ORAL
     Route: 048

REACTIONS (16)
  - ACUTE PSYCHOSIS [None]
  - CARDIAC ARREST [None]
  - CARDIO-RESPIRATORY ARREST [None]
  - CYANOSIS [None]
  - DRUG ADMINISTRATION ERROR [None]
  - DRUG DISPENSING ERROR [None]
  - DRUG INTERACTION [None]
  - DYSPNOEA [None]
  - ELECTROCARDIOGRAM ST-T SEGMENT ABNORMAL [None]
  - HYPOTENSION [None]
  - LOSS OF CONSCIOUSNESS [None]
  - RESPIRATORY DISTRESS [None]
  - SINUS TACHYCARDIA [None]
  - SPASMODIC DYSPHONIA [None]
  - STRIDOR [None]
  - UPPER AIRWAY OBSTRUCTION [None]
